FAERS Safety Report 5133618-1 (Version None)
Quarter: 2006Q4

REPORT INFORMATION
  Report Type: 
  Country: None (occurrence: None)
  Receive Date: 20061024
  Receipt Date: 20060303
  Transmission Date: 20070319
  Serious: No
  Sender: FDA-Public Use
  Company Number: US-AMGEN-US171091

PATIENT
  Sex: Female

DRUGS (1)
  1. SENSIPAR [Suspect]
     Indication: PARATHYROID TUMOUR MALIGNANT
     Route: 048
     Dates: start: 20040901

REACTIONS (4)
  - DIZZINESS [None]
  - INFECTION [None]
  - MUSCULAR WEAKNESS [None]
  - NAUSEA [None]
